FAERS Safety Report 9414345 (Version 1)
Quarter: 2013Q3

REPORT INFORMATION
  Report Type: Report from Study
  Country: FR (occurrence: FR)
  Receive Date: 20130723
  Receipt Date: 20130723
  Transmission Date: 20140515
  Serious: Yes (Other)
  Sender: FDA-Public Use
  Company Number: FR-AMGEN-FRACT2013028578

PATIENT
  Age: 60 Year
  Sex: Female

DRUGS (4)
  1. ETANERCEPT [Suspect]
     Indication: RHEUMATOID ARTHRITIS
     Dosage: 50 MG, QWK
     Route: 065
     Dates: start: 200606, end: 201006
  2. METHOTREXATE SODIUM [Concomitant]
     Dosage: 10 MG, WEEKLY
     Dates: start: 2005, end: 201107
  3. PREDNISONE [Concomitant]
     Dosage: 6 MG, UNK
     Dates: start: 2005, end: 200707
  4. PREDNISONE [Concomitant]
     Dosage: 5 MG, UNK
     Dates: start: 200707, end: 201107

REACTIONS (2)
  - Bronchiectasis [Recovered/Resolved]
  - Lung infection [Recovered/Resolved]
